FAERS Safety Report 10518646 (Version 2)
Quarter: 2014Q4

REPORT INFORMATION
  Report Type: Spontaneous
  Country: FR (occurrence: FR)
  Receive Date: 20141015
  Receipt Date: 20141015
  Transmission Date: 20150528
  Serious: Yes (Other)
  Sender: FDA-Public Use
  Company Number: FR-LEO PHARMA-226829

PATIENT
  Age: 73 Year
  Sex: Male

DRUGS (1)
  1. PICATO [Suspect]
     Active Substance: INGENOL MEBUTATE
     Indication: SOLAR LENTIGO
     Route: 061
     Dates: start: 20140218, end: 20140219

REACTIONS (3)
  - Incorrect dose administered [Unknown]
  - Application site oedema [Unknown]
  - Burns second degree [Unknown]

NARRATIVE: CASE EVENT DATE: 20140218
